FAERS Safety Report 7397607-9 (Version None)
Quarter: 2011Q2

REPORT INFORMATION
  Report Type: 
  Country: None (occurrence: None)
  Receive Date: 20110401
  Receipt Date: 20110401
  Transmission Date: 20111010
  Serious: Yes (Other)
  Sender: FDA-Public Use
  Company Number: None

PATIENT
  Sex: Female
  Weight: 65.7716 kg

DRUGS (3)
  1. CLONAZEPAM [Suspect]
     Indication: ANXIETY
     Dosage: .5 TWICE PER DAY PO
     Route: 048
     Dates: start: 20100810, end: 20101218
  2. CLONAZEPAM [Suspect]
     Indication: INSOMNIA
     Dosage: .5 TWICE PER DAY PO
     Route: 048
     Dates: start: 20100810, end: 20101218
  3. SIMVASTATIN [Suspect]
     Indication: BLOOD CHOLESTEROL INCREASED
     Dosage: 40 MG  ONE PER DAY PO
     Route: 048
     Dates: start: 20100810, end: 20100810

REACTIONS (6)
  - ABDOMINAL PAIN UPPER [None]
  - HAEMATURIA [None]
  - RENAL DISORDER [None]
  - PRODUCT SUBSTITUTION ISSUE [None]
  - LIVER DISORDER [None]
  - PELVIC PAIN [None]
